FAERS Safety Report 9240315 (Version 1)
Quarter: 2013Q2

REPORT INFORMATION
  Report Type: Spontaneous
  Country: US (occurrence: None)
  Receive Date: 20130417
  Receipt Date: 20130417
  Transmission Date: 20140414
  Serious: Yes (Hospitalization, Other)
  Sender: FDA-Public Use
  Company Number: 2013HINLIT0079

PATIENT
  Age: 50 Year
  Sex: Male
  Weight: 131.5 kg

DRUGS (16)
  1. INDOMETHACIN [Suspect]
     Indication: INFLAMMATION
  2. VANCOMYCIN [Concomitant]
  3. CEFAZOLIN [Concomitant]
  4. ASPIRIN [Concomitant]
  5. DIGOXIN [Concomitant]
  6. FERROUS SULFATE [Concomitant]
  7. ERYTHROPOLETIN [Concomitant]
  8. INSULIN LISPRO [Concomitant]
  9. METOPROLOL [Concomitant]
  10. MAGNESIUM OXIDE [Concomitant]
  11. PANTOPRAZOLE [Concomitant]
  12. TRAMADOL [Concomitant]
  13. COLCHICINE [Concomitant]
  14. SENNA/ DOCUSATE [Concomitant]
  15. COUMADIN [Concomitant]
  16. RENAL MULTIVITAMINS [Concomitant]

REACTIONS (1)
  - Leukocytoclastic vasculitis [None]
